FAERS Safety Report 8342153-9 (Version None)
Quarter: 2012Q2

REPORT INFORMATION
  Report Type: 
  Country: None (occurrence: None)
  Receive Date: 20120507
  Receipt Date: 20120425
  Transmission Date: 20120825
  Serious: Yes (Hospitalization, Other)
  Sender: FDA-Public Use
  Company Number: DE-TEVA-335470GER

PATIENT
  Sex: Male
  Weight: 63 kg

DRUGS (8)
  1. TRASTUZUMAB [Suspect]
     Indication: BREAST CANCER
     Route: 042
     Dates: start: 20120327, end: 20120417
  2. LAPATINIB [Suspect]
     Indication: BREAST CANCER
     Dosage: 500 MILLIGRAM;
     Route: 048
     Dates: start: 20120327, end: 20120417
  3. CARBOPLATIN [Suspect]
     Indication: BREAST CANCER
     Route: 042
     Dates: start: 20120327, end: 20120417
  4. DOXORUBICIN HCL [Suspect]
     Indication: BREAST CANCER
     Route: 042
     Dates: start: 20120327, end: 20120417
  5. LOPERAMIDE [Concomitant]
     Dates: start: 20120317
  6. PACLITAXEL [Suspect]
     Indication: BREAST CANCER
     Route: 042
     Dates: start: 20120327, end: 20120417
  7. GRANISETRON [Concomitant]
     Dates: start: 20120317
  8. FENISTIL [Concomitant]
     Dates: start: 20120317

REACTIONS (1)
  - EMBOLISM [None]
